FAERS Safety Report 7518353-4 (Version None)
Quarter: 2011Q2

REPORT INFORMATION
  Report Type: 
  Country: None (occurrence: None)
  Receive Date: 20110602
  Receipt Date: 20100110
  Transmission Date: 20111010
  Serious: Yes (Death, Hospitalization, Other)
  Sender: FDA-Public Use
  Company Number: US-BAYER-201010283NA

PATIENT
  Age: 58 Year
  Sex: Female
  Weight: 121 kg

DRUGS (12)
  1. TRASYLOL [Suspect]
     Indication: CORONARY ARTERY BYPASS
     Dosage: LOADING DOSE OF 200CC IV THEN 50 CC/ HR. IV
     Route: 042
     Dates: start: 20040123, end: 20040123
  2. TRASYLOL [Suspect]
     Indication: MITRAL VALVE REPLACEMENT
  3. PLASMA [Concomitant]
     Dosage: 500ML
     Dates: start: 20040123
  4. COUMADIN [Concomitant]
  5. THROMBOSTAT [Concomitant]
     Dosage: 5000UNITS
     Route: 042
     Dates: start: 20040123, end: 20040123
  6. PROTAMINE SULFATE [Concomitant]
     Dosage: 250MG
     Route: 042
     Dates: start: 20040123, end: 20040123
  7. INSULIN [Concomitant]
  8. TENORMIN [Concomitant]
  9. NITROGLYCERIN [Concomitant]
  10. CELEBREX [Concomitant]
     Dosage: 200MG./DAILY
     Route: 048
     Dates: start: 20010906
  11. HEPARIN [Concomitant]
     Dosage: 33,000 UNITS
     Route: 042
     Dates: start: 20040123, end: 20040123
  12. LASIX [Concomitant]
     Dosage: 20 MG
     Route: 042
     Dates: start: 20040123

REACTIONS (12)
  - MYOCARDIAL INFARCTION [None]
  - FEAR [None]
  - PAIN [None]
  - DEPRESSION [None]
  - RENAL INJURY [None]
  - DEATH [None]
  - ANXIETY [None]
  - RENAL FAILURE [None]
  - UNEVALUABLE EVENT [None]
  - ANHEDONIA [None]
  - INJURY [None]
  - CEREBROVASCULAR ACCIDENT [None]
